FAERS Safety Report 14430770 (Version 1)
Quarter: 2018Q1

REPORT INFORMATION
  Report Type: Spontaneous
  Country: US (occurrence: US)
  Receive Date: 20180124
  Receipt Date: 20180124
  Transmission Date: 20180509
  Serious: Yes (Life-Threatening)
  Sender: FDA-Public Use
  Company Number: None

PATIENT
  Age: 75 Year
  Sex: Female
  Weight: 58.97 kg

DRUGS (9)
  1. MAGNESIUM [Concomitant]
     Active Substance: MAGNESIUM
  2. POTASSIUM [Concomitant]
     Active Substance: POTASSIUM
  3. LIOTHYRONINE [Suspect]
     Active Substance: LIOTHYRONINE
     Indication: DRUG THERAPY
     Dosage: T3 0.5MCG 1 CAPSULE 1 X DAILY BY MOUTH
     Route: 048
     Dates: start: 20170925, end: 20171012
  4. LEVOTHYROXINE. [Suspect]
     Active Substance: LEVOTHYROXINE
     Indication: DRUG THERAPY
     Route: 048
     Dates: start: 20170925, end: 20171012
  5. TIMOLOL. [Concomitant]
     Active Substance: TIMOLOL
  6. VITAMIN D [Concomitant]
     Active Substance: CHOLECALCIFEROL
  7. FEMRT [Concomitant]
  8. CALCIUM [Concomitant]
     Active Substance: CALCIUM
  9. TIROSINT [Concomitant]
     Active Substance: LEVOTHYROXINE SODIUM

REACTIONS (4)
  - Blood pressure increased [None]
  - Drug ineffective [None]
  - Multiple organ dysfunction syndrome [None]
  - Blood thyroid stimulating hormone increased [None]

NARRATIVE: CASE EVENT DATE: 20171210
